FAERS Safety Report 19283759 (Version 2)
Quarter: 2021Q2

REPORT INFORMATION
  Report Type: Report from Study
  Country: JP (occurrence: JP)
  Receive Date: 20210521
  Receipt Date: 20210526
  Transmission Date: 20210717
  Serious: Yes (Other)
  Sender: FDA-Public Use
  Company Number: NVSJ2020JP011920

PATIENT
  Age: 8 Month
  Sex: Male
  Weight: 7.7 kg

DRUGS (2)
  1. ZOLGENSMA [Suspect]
     Active Substance: ONASEMNOGENE ABEPARVOVEC-XIOI
     Indication: SPINAL MUSCULAR ATROPHY
     Dosage: 44.2 ML
     Route: 041
     Dates: start: 20201106
  2. PREDNISOLONE. [Suspect]
     Active Substance: PREDNISOLONE
     Indication: PRODUCT USED FOR UNKNOWN INDICATION
     Dosage: 4 MG
     Route: 048
     Dates: start: 20201105

REACTIONS (11)
  - Blood creatine phosphokinase MB increased [Not Recovered/Not Resolved]
  - Pyrexia [Recovered/Resolved]
  - Decreased appetite [Recovered/Resolved]
  - Pyrexia [Recovered/Resolved]
  - Alanine aminotransferase increased [Not Recovered/Not Resolved]
  - Cushingoid [Recovered/Resolved]
  - Gastrointestinal disorder [Not Recovered/Not Resolved]
  - Aspartate aminotransferase increased [Recovered/Resolved]
  - Troponin I increased [Recovered/Resolved]
  - Diarrhoea [Recovered/Resolved]
  - Platelet count decreased [Recovered/Resolved]

NARRATIVE: CASE EVENT DATE: 20201108
